FAERS Safety Report 11944518 (Version 1)
Quarter: 2016Q1

REPORT INFORMATION
  Report Type: Spontaneous
  Country: US (occurrence: US)
  Receive Date: 20160125
  Receipt Date: 20160125
  Transmission Date: 20160526
  Serious: Yes (Other)
  Sender: FDA-Public Use
  Company Number: US-DRREDDYS-USA/USA/16/0064117

PATIENT
  Age: 29 Year
  Sex: Female

DRUGS (1)
  1. TACROLIMUS. [Suspect]
     Active Substance: TACROLIMUS
     Indication: IMMUNOSUPPRESSION
     Route: 065

REACTIONS (4)
  - Hypercoagulation [Unknown]
  - Antiphospholipid syndrome [Unknown]
  - Posterior reversible encephalopathy syndrome [Unknown]
  - Portal vein thrombosis [Unknown]
